FAERS Safety Report 9450708 (Version 2)
Quarter: 2013Q3

REPORT INFORMATION
  Report Type: Spontaneous
  Country: DE (occurrence: None)
  Receive Date: 20130807
  Receipt Date: 20130809
  Transmission Date: 20140515
  Serious: Yes (Other)
  Sender: FDA-Public Use
  Company Number: 1307-960

PATIENT
  Age: 84 Year
  Sex: Male

DRUGS (1)
  1. EYLEA (AFLIBERCEPT) (INJECTION) (AFLIBERCEPT) [Suspect]
     Indication: AGE-RELATED MACULAR DEGENERATION
     Route: 031
     Dates: start: 20121221

REACTIONS (7)
  - Fall [None]
  - Cataract [None]
  - Laceration [None]
  - Limb injury [None]
  - Joint injury [None]
  - Visual impairment [None]
  - Visual impairment [None]
